FAERS Safety Report 9956173 (Version 1)
Quarter: 2014Q1

REPORT INFORMATION
  Report Type: Report from Study
  Country: US (occurrence: US)
  Receive Date: 20140304
  Receipt Date: 20140304
  Transmission Date: 20141002
  Serious: No
  Sender: FDA-Public Use
  Company Number: US-ABBVIE-13P-163-1089347-00

PATIENT
  Age: 30 Year
  Sex: Male

DRUGS (6)
  1. HUMIRA [Suspect]
     Indication: COLITIS ULCERATIVE
     Dates: start: 201212
  2. FOLIC ACID [Concomitant]
     Indication: COLITIS ULCERATIVE
  3. PREDNISONE [Concomitant]
     Indication: COLITIS ULCERATIVE
  4. ASACOL [Concomitant]
     Indication: COLITIS ULCERATIVE
  5. MESALAMINE [Concomitant]
     Indication: COLITIS ULCERATIVE
  6. ATRIPLA [Concomitant]
     Indication: HIV INFECTION

REACTIONS (4)
  - Muscle strain [Not Recovered/Not Resolved]
  - Oedema peripheral [Not Recovered/Not Resolved]
  - Skin warm [Not Recovered/Not Resolved]
  - Gait disturbance [Not Recovered/Not Resolved]
